FAERS Safety Report 23886255 (Version 4)
Quarter: 2025Q1

REPORT INFORMATION
  Report Type: Spontaneous
  Country: FR (occurrence: FR)
  Receive Date: 20240522
  Receipt Date: 20250207
  Transmission Date: 20250409
  Serious: Yes (Death, Hospitalization)
  Sender: NOVARTIS
  Company Number: FR-002147023-NVSC2024FR081823

PATIENT
  Age: 44 Year
  Sex: Female

DRUGS (3)
  1. OCTREOTIDE ACETATE [Suspect]
     Active Substance: OCTREOTIDE ACETATE
     Indication: Product used for unknown indication
     Route: 065
     Dates: start: 202312
  2. OCTREOTIDE ACETATE [Suspect]
     Active Substance: OCTREOTIDE ACETATE
     Route: 065
  3. OCTREOTIDE ACETATE [Suspect]
     Active Substance: OCTREOTIDE ACETATE
     Route: 065

REACTIONS (6)
  - Death [Fatal]
  - Injection site discharge [Unknown]
  - Wrong device used [Unknown]
  - Product use complaint [Unknown]
  - Product physical consistency issue [Unknown]
  - Off label use [Unknown]

NARRATIVE: CASE EVENT DATE: 20240408
